FAERS Safety Report 19947856 (Version 2)
Quarter: 2021Q4

REPORT INFORMATION
  Report Type: Report from Study
  Country: US (occurrence: US)
  Receive Date: 20211012
  Receipt Date: 20211227
  Transmission Date: 20220303
  Serious: Yes (Other)
  Sender: FDA-Public Use
  Company Number: US-ABBVIE-21K-163-4113429-00

PATIENT
  Age: 52 Year
  Sex: Male
  Weight: 127.57 kg

DRUGS (1)
  1. SKYRIZI [Suspect]
     Active Substance: RISANKIZUMAB-RZAA
     Indication: Psoriasis
     Route: 058

REACTIONS (2)
  - Meniscus injury [Recovering/Resolving]
  - Meniscus injury [Unknown]

NARRATIVE: CASE EVENT DATE: 20210623
